FAERS Safety Report 4347070-7 (Version None)
Quarter: 2004Q2

REPORT INFORMATION
  Report Type: 
  Country: None (occurrence: None)
  Receive Date: 20040426
  Receipt Date: 20040422
  Transmission Date: 20050107
  Serious: Yes (Other)
  Sender: FDA-Public Use
  Company Number: US-GLAXOSMITHKLINE-A0508084A

PATIENT
  Age: 52 Year
  Sex: Male

DRUGS (4)
  1. FLONASE [Suspect]
     Dosage: 2SPR PER DAY
     Route: 045
     Dates: end: 20040422
  2. MULTI-VITAMINS [Concomitant]
  3. VITAMIN E [Concomitant]
  4. CALCIUM [Concomitant]

REACTIONS (7)
  - ARTHRALGIA [None]
  - ASEPTIC NECROSIS BONE [None]
  - BURNING SENSATION [None]
  - GAIT DISTURBANCE [None]
  - JOINT EFFUSION [None]
  - MUSCULOSKELETAL DISORDER [None]
  - PRURITUS [None]
